FAERS Safety Report 5271842-8 (Version None)
Quarter: 2007Q1

REPORT INFORMATION
  Report Type: 
  Country: None (occurrence: None)
  Receive Date: 20070321
  Receipt Date: 20070312
  Transmission Date: 20070707
  Serious: Yes (Other)
  Sender: FDA-Public Use
  Company Number: US-PFIZER INC-2007019387

PATIENT
  Sex: Female
  Weight: 68 kg

DRUGS (3)
  1. ACCUPRIL [Suspect]
     Indication: RENAL DISORDER
  2. GLUCOTROL XL [Concomitant]
  3. LIPITOR [Concomitant]

REACTIONS (9)
  - ANAEMIA [None]
  - BACTERIA URINE [None]
  - BLOOD GLUCOSE ABNORMAL [None]
  - CELLS IN URINE [None]
  - CONDITION AGGRAVATED [None]
  - HAEMOGLOBIN URINE PRESENT [None]
  - MEDICATION RESIDUE [None]
  - RENAL IMPAIRMENT [None]
  - URINE LEUKOCYTE ESTERASE POSITIVE [None]
